FAERS Safety Report 9896749 (Version 1)
Quarter: 2014Q1

REPORT INFORMATION
  Report Type: Spontaneous
  Country: US (occurrence: US)
  Receive Date: 20140213
  Receipt Date: 20140213
  Transmission Date: 20141002
  Serious: No
  Sender: FDA-Public Use
  Company Number: US-BRISTOL-MYERS SQUIBB COMPANY-19182328

PATIENT
  Age: 35 Year
  Sex: Female
  Weight: 62.58 kg

DRUGS (16)
  1. ABATACEPT SUBQ INJECTION 125MG/ML [Suspect]
     Indication: RHEUMATOID ARTHRITIS
     Dosage: 1DF:125MG/ML
     Route: 058
  2. ALLEGRA [Concomitant]
  3. ASTELIN SPRAY [Concomitant]
  4. CYMBALTA [Concomitant]
     Dosage: CAP
  5. FLOMAX [Concomitant]
     Dosage: CAP
  6. METHOTREXATE [Concomitant]
     Dosage: INJ
  7. MONODOX [Concomitant]
     Dosage: CAPS
  8. NASALCROM [Concomitant]
     Dosage: 1DF:5.2/ACT?SPR
  9. CLONAZEPAM [Concomitant]
     Dosage: TABS
  10. FLEXERIL [Concomitant]
     Dosage: TABS
  11. HYDROCODONE + ACETAMINOPHEN [Concomitant]
     Dosage: 1DF:10-325MG?TABS
  12. MACROBID [Concomitant]
     Dosage: CAP
  13. SINGULAIR [Concomitant]
     Dosage: TABS
  14. SUDAFED [Concomitant]
     Dosage: TABS
  15. TRAZODONE HCL [Concomitant]
     Dosage: TABS
  16. ZYRTEC [Concomitant]
     Dosage: TAB

REACTIONS (1)
  - Fungal infection [Unknown]
